FAERS Safety Report 25777019 (Version 1)
Quarter: 2025Q3

REPORT INFORMATION
  Report Type: Spontaneous
  Country: US (occurrence: US)
  Receive Date: 20250909
  Receipt Date: 20250909
  Transmission Date: 20251020
  Serious: No
  Sender: DOMPE FARMACEUTICI
  Company Number: US-FARMAPROD-202409-3382

PATIENT
  Age: 74 Year
  Sex: Female

DRUGS (15)
  1. OXERVATE [Suspect]
     Active Substance: CENEGERMIN-BKBJ
     Indication: Neurotrophic keratopathy
     Route: 047
     Dates: start: 20240917
  2. THERMOTABS [Concomitant]
  3. FEMARA [Concomitant]
     Active Substance: LETROZOLE
  4. SENNA [Concomitant]
     Active Substance: SENNOSIDES
  5. PROTONIX [Concomitant]
     Active Substance: PANTOPRAZOLE SODIUM
  6. LIPITOR [Concomitant]
     Active Substance: ATORVASTATIN CALCIUM
  7. CARAFATE [Concomitant]
     Active Substance: SUCRALFATE
  8. LAMICTAL [Concomitant]
     Active Substance: LAMOTRIGINE
  9. DDAVP [Concomitant]
     Active Substance: DESMOPRESSIN ACETATE
  10. SOLIFENACIN SUCCINATE [Concomitant]
     Active Substance: SOLIFENACIN SUCCINATE
  11. NORVASC [Concomitant]
     Active Substance: AMLODIPINE BESYLATE
  12. VITAMIN E and K [Concomitant]
  13. AQUAPHOR [Concomitant]
     Active Substance: PETROLATUM
  14. MIEBO [Concomitant]
     Active Substance: PERFLUOROHEXYLOCTANE
  15. RESTASIS [Concomitant]
     Active Substance: CYCLOSPORINE

REACTIONS (7)
  - Product dose omission issue [Not Recovered/Not Resolved]
  - Illness [Unknown]
  - Vomiting [Unknown]
  - Diarrhoea [Unknown]
  - Dry eye [Not Recovered/Not Resolved]
  - Fall [Unknown]
  - Eye pain [Unknown]

NARRATIVE: CASE EVENT DATE: 20240917
